FAERS Safety Report 13177426 (Version 1)
Quarter: 2017Q1

REPORT INFORMATION
  Report Type: Report from Study
  Country: US (occurrence: US)
  Receive Date: 20170201
  Receipt Date: 20170201
  Transmission Date: 20170428
  Serious: No
  Sender: FDA-Public Use
  Company Number: US-EXELIXIS-CABO-16006156

PATIENT
  Sex: Male

DRUGS (7)
  1. FAMOTIDINE. [Concomitant]
     Active Substance: FAMOTIDINE
  2. LEVEMIR [Concomitant]
     Active Substance: INSULIN DETEMIR
  3. OMEPRAZOLE. [Concomitant]
     Active Substance: OMEPRAZOLE
  4. OXYCODONE [Concomitant]
     Active Substance: OXYCODONE
  5. COMETRIQ [Suspect]
     Active Substance: CABOZANTINIB S-MALATE
     Indication: THYROID CANCER
     Dosage: 140 MG, QD
     Route: 048
     Dates: start: 20160315, end: 201604
  6. HUMALOG [Concomitant]
     Active Substance: INSULIN LISPRO
  7. LEVOTHYROXINE. [Concomitant]
     Active Substance: LEVOTHYROXINE

REACTIONS (7)
  - Glossodynia [Not Recovered/Not Resolved]
  - Gastrointestinal inflammation [Unknown]
  - Neuralgia [Unknown]
  - Dysphagia [Unknown]
  - Skin discolouration [Unknown]
  - Burning sensation [Unknown]
  - Pigmentation disorder [Not Recovered/Not Resolved]
